FAERS Safety Report 10372734 (Version 1)
Quarter: 2014Q3

REPORT INFORMATION
  Report Type: Spontaneous
  Country: US (occurrence: US)
  Receive Date: 20140808
  Receipt Date: 20140808
  Transmission Date: 20150326
  Serious: No
  Sender: FDA-Public Use
  Company Number: US-BRISTOL-MYERS SQUIBB COMPANY-19396993

PATIENT
  Age: 84 Year
  Sex: Male

DRUGS (1)
  1. SPRYCEL [Suspect]
     Active Substance: DASATINIB
     Indication: LYMPHOCYTOSIS
     Dosage: TAB,LAST ADM DATE:AUG13,REDUCED TO 50MG
     Route: 048
     Dates: start: 201305

REACTIONS (1)
  - Asthenia [Unknown]
